FAERS Safety Report 6037920-0 (Version None)
Quarter: 2009Q1

REPORT INFORMATION
  Report Type: 
  Country: None (occurrence: None)
  Receive Date: 20090115
  Receipt Date: 20090109
  Transmission Date: 20090719
  Serious: Yes (Other)
  Sender: FDA-Public Use
  Company Number: US-ALLERGAN-0900289US

PATIENT
  Sex: Female

DRUGS (2)
  1. SANCTURA XR [Suspect]
     Indication: URINARY INCONTINENCE
     Dosage: RECENTLY
     Route: 048
  2. FOSAMAX [Concomitant]
     Dosage: UNK, Q WEEK

REACTIONS (1)
  - CONFUSIONAL STATE [None]
